FAERS Safety Report 18080632 (Version 3)
Quarter: 2020Q3

REPORT INFORMATION
  Report Type: Spontaneous
  Country: IT (occurrence: IT)
  Receive Date: 20200728
  Receipt Date: 20200803
  Transmission Date: 20201103
  Serious: Yes (Life-Threatening, Other)
  Sender: FDA-Public Use
  Company Number: IT-PFIZER INC-2020286276

PATIENT
  Age: 61 Year
  Sex: Male

DRUGS (5)
  1. AULIN [Suspect]
     Active Substance: NIMESULIDE
     Dosage: 10 DF, TOTAL
     Route: 048
     Dates: start: 20200125, end: 20200125
  2. MEDROL [Suspect]
     Active Substance: METHYLPREDNISOLONE
     Dosage: 20 DF, TOTAL
     Route: 048
     Dates: start: 20200125, end: 20200125
  3. TRIATEC (RAMIPRIL) [Suspect]
     Active Substance: RAMIPRIL
     Dosage: 14 DF, TOTAL
     Route: 048
     Dates: start: 20200125, end: 20200125
  4. TACHIPIRINA [Suspect]
     Active Substance: ACETAMINOPHEN
     Dosage: 20 DF, TOTAL
     Route: 048
     Dates: start: 20200125, end: 20200125
  5. ZIRTEC [Suspect]
     Active Substance: CETIRIZINE HYDROCHLORIDE
     Dosage: 20 DF, TOTAL
     Route: 048
     Dates: start: 20200125, end: 20200125

REACTIONS (6)
  - Drug abuse [Unknown]
  - Intentional self-injury [Recovered/Resolved]
  - Analgesic drug level increased [Recovered/Resolved]
  - Intentional product misuse [Unknown]
  - Intentional overdose [Unknown]
  - Loss of consciousness [Recovered/Resolved]

NARRATIVE: CASE EVENT DATE: 20200125
